FAERS Safety Report 23101848 (Version 1)
Quarter: 2023Q4

REPORT INFORMATION
  Report Type: Report from Study
  Country: CA (occurrence: CA)
  Receive Date: 20231025
  Receipt Date: 20231025
  Transmission Date: 20240110
  Serious: Yes (Other)
  Sender: FDA-Public Use
  Company Number: CA-JNJFOC-20231052709

PATIENT
  Age: 12 Year
  Sex: Female
  Weight: 41 kg

DRUGS (3)
  1. REMICADE [Suspect]
     Active Substance: INFLIXIMAB
     Indication: Colitis ulcerative
     Dosage: THERAPY START DATE: 05-OCT-2023
     Route: 042
     Dates: start: 20230313
  2. REMICADE [Suspect]
     Active Substance: INFLIXIMAB
     Dosage: 1 DOSE AT WEEK 4
     Route: 042
     Dates: start: 20231019
  3. REMICADE [Suspect]
     Active Substance: INFLIXIMAB
     Route: 042
     Dates: start: 2023

REACTIONS (3)
  - Colitis ulcerative [Unknown]
  - Platelet count increased [Unknown]
  - Drug level below therapeutic [Unknown]

NARRATIVE: CASE EVENT DATE: 20230101
